FAERS Safety Report 9920322 (Version 1)
Quarter: 2014Q1

REPORT INFORMATION
  Report Type: Spontaneous
  Country: US (occurrence: US)
  Receive Date: 20140224
  Receipt Date: 20140224
  Transmission Date: 20141002
  Serious: No
  Sender: FDA-Public Use
  Company Number: US-NOVEN-13US008044

PATIENT
  Sex: Female

DRUGS (5)
  1. MINIVELLE [Suspect]
     Indication: MENOPAUSAL SYMPTOMS
     Dosage: 0.1 MG/DAY, UNK
     Route: 062
  2. MINIVELLE [Suspect]
     Indication: INSOMNIA
  3. MINIVELLE [Suspect]
     Indication: HOT FLUSH
  4. MINIVELLE [Suspect]
     Indication: MIGRAINE
  5. MINIVELLE [Suspect]
     Indication: MIGRAINE

REACTIONS (5)
  - Drug prescribing error [Not Recovered/Not Resolved]
  - Off label use [Not Recovered/Not Resolved]
  - Wrong technique in drug usage process [Not Recovered/Not Resolved]
  - Product quality issue [Not Recovered/Not Resolved]
  - No adverse event [None]
